FAERS Safety Report 4477802-9 (Version None)
Quarter: 2004Q4

REPORT INFORMATION
  Report Type: 
  Country: None (occurrence: None)
  Receive Date: 20041018
  Receipt Date: 20041008
  Transmission Date: 20050328
  Serious: Yes (Hospitalization)
  Sender: FDA-Public Use
  Company Number: US-MERCK-0410USA01353

PATIENT
  Age: 60 Year
  Sex: Female

DRUGS (4)
  1. [THERAPY UNSPECIFIED] [Concomitant]
     Route: 065
  2. SINGULAIR [Suspect]
     Route: 048
  3. EVISTA [Concomitant]
     Route: 065
  4. VIOXX [Concomitant]
     Route: 048

REACTIONS (1)
  - JAUNDICE CHOLESTATIC [None]
